FAERS Safety Report 12331384 (Version 1)
Quarter: 2016Q2

REPORT INFORMATION
  Report Type: Spontaneous
  Country: ES (occurrence: ES)
  Receive Date: 20160504
  Receipt Date: 20160504
  Transmission Date: 20160815
  Serious: Yes (Other)
  Sender: FDA-Public Use
  Company Number: ES-TEVA-657189ISR

PATIENT
  Age: 30 Year
  Sex: Male

DRUGS (2)
  1. TEMOZOLOMIDE. [Suspect]
     Active Substance: TEMOZOLOMIDE
     Indication: NON-SECRETORY ADENOMA OF PITUITARY
     Dosage: 150 MG/M2 EVERY 5/28 DAYS TOTAL 12 CYCLES
     Route: 065
     Dates: start: 201107
  2. KETOCONAZOLE. [Concomitant]
     Active Substance: KETOCONAZOLE
     Route: 065

REACTIONS (5)
  - Drug resistance [Unknown]
  - Nausea [Unknown]
  - Pneumonia [Unknown]
  - Condition aggravated [Not Recovered/Not Resolved]
  - Treatment failure [Unknown]
